FAERS Safety Report 10263209 (Version 2)
Quarter: 2014Q2

REPORT INFORMATION
  Report Type: Report from Study
  Country: US (occurrence: US)
  Receive Date: 20140626
  Receipt Date: 20140626
  Transmission Date: 20141212
  Serious: Yes (Other)
  Sender: FDA-Public Use
  Company Number: US-MYLANLABS-2014S1007932

PATIENT
  Age: 55 Year
  Sex: Female
  Weight: 100.7 kg

DRUGS (4)
  1. CLOZAPINE TABLETS [Suspect]
     Indication: SCHIZOAFFECTIVE DISORDER
     Route: 048
     Dates: end: 20140409
  2. CLOZAPINE TABLETS [Suspect]
     Indication: SCHIZOAFFECTIVE DISORDER
     Dosage: 1 TABLET BY MOUTH DAILY AND 2.5 TABLETS BY MOUTH AT BEDTIME
     Route: 048
     Dates: end: 20140409
  3. CLOZAPINE TABLETS [Suspect]
     Indication: SCHIZOAFFECTIVE DISORDER
     Route: 048
     Dates: start: 2014
  4. CLOZAPINE TABLETS [Suspect]
     Indication: SCHIZOAFFECTIVE DISORDER
     Route: 048
     Dates: start: 2014

REACTIONS (1)
  - Leukopenia [Recovered/Resolved]
